FAERS Safety Report 13944492 (Version 8)
Quarter: 2018Q2

REPORT INFORMATION
  Report Type: Report from Study
  Country: JP (occurrence: JP)
  Receive Date: 20170907
  Receipt Date: 20180522
  Transmission Date: 20180711
  Serious: Yes (Hospitalization)
  Sender: FDA-Public Use
  Company Number: JP-ROCHE-1984203

PATIENT
  Age: 66 Year
  Sex: Female

DRUGS (26)
  1. BLOPRESS [Concomitant]
     Active Substance: CANDESARTAN CILEXETIL
     Indication: HYPERTENSION
     Route: 065
     Dates: start: 20120106, end: 20170820
  2. MAGNESIUM OXIDE. [Concomitant]
     Active Substance: MAGNESIUM OXIDE
     Indication: CONSTIPATION
     Route: 065
     Dates: start: 20111226
  3. MECOBALAMIN [Concomitant]
     Active Substance: METHYLCOBALAMIN
     Indication: NEUROPATHY PERIPHERAL
     Route: 065
     Dates: start: 20131122
  4. ADOFEED [Concomitant]
     Active Substance: FLURBIPROFEN
     Indication: ARTHRALGIA
     Route: 065
     Dates: start: 20170614, end: 20170810
  5. MEDROL [Concomitant]
     Active Substance: METHYLPREDNISOLONE
     Indication: ALLERGY PROPHYLAXIS
     Route: 065
     Dates: start: 20170823, end: 20170823
  6. CRAVIT [Concomitant]
     Active Substance: LEVOFLOXACIN
     Indication: CELLULITIS
     Route: 065
     Dates: start: 20170825, end: 20170829
  7. LEVOFLOXACIN. [Concomitant]
     Active Substance: LEVOFLOXACIN
     Indication: CELLULITIS
     Route: 065
     Dates: start: 20170829, end: 20170904
  8. CYCLOPHOSPHAMIDE. [Concomitant]
     Active Substance: CYCLOPHOSPHAMIDE
  9. RESTAMIN KOWA [Concomitant]
     Indication: ALLERGY PROPHYLAXIS
     Route: 065
     Dates: start: 20170920, end: 20170920
  10. GENTAMICIN SULFATE. [Concomitant]
     Active Substance: GENTAMICIN SULFATE
     Indication: CELLULITIS
  11. MEDROL [Concomitant]
     Active Substance: METHYLPREDNISOLONE
     Route: 065
     Dates: start: 20170919, end: 20170920
  12. DIAZEPAM. [Concomitant]
     Active Substance: DIAZEPAM
     Indication: PREMEDICATION
     Route: 065
     Dates: start: 20170824, end: 20170824
  13. CEFMETAZON [Concomitant]
     Active Substance: CEFMETAZOLE SODIUM
     Indication: CELLULITIS
     Route: 065
     Dates: start: 20170810, end: 20170817
  14. BEZATOL [Concomitant]
     Active Substance: BEZAFIBRATE
  15. ZOLEDRONIC ACID [Concomitant]
     Active Substance: ZOLEDRONIC ACID
     Indication: METASTASES TO BONE
     Route: 065
     Dates: start: 20160318
  16. URSODEOXYCHOLIC ACID [Concomitant]
     Active Substance: URSODIOL
     Indication: ASPARTATE AMINOTRANSFERASE INCREASED
     Route: 065
     Dates: start: 20160912
  17. LOXONIN [Concomitant]
     Active Substance: LOXOPROFEN SODIUM
     Indication: ARTHRALGIA
     Route: 065
     Dates: start: 20170614
  18. DIAZEPAM. [Concomitant]
     Active Substance: DIAZEPAM
     Route: 065
     Dates: start: 20170828, end: 20170828
  19. PENTAGIN [Concomitant]
     Active Substance: PENTAZOCINE HYDROCHLORIDE
     Route: 065
     Dates: start: 20170828, end: 20170828
  20. BEZAFIBRATE [Concomitant]
     Active Substance: BEZAFIBRATE
     Route: 065
     Dates: start: 20170710
  21. FASLODEX [Concomitant]
     Active Substance: FULVESTRANT
  22. TRASTUZUMAB EMTANSINE [Suspect]
     Active Substance: ADO-TRASTUZUMAB EMTANSINE
     Indication: BREAST CANCER
     Dosage: MOST RECENT DOSE PRIOR TO SAE- 21/AUG/2017 (237 MG)
     Route: 042
     Dates: start: 20160502
  23. FAMOTIDINE D [Concomitant]
     Active Substance: FAMOTIDINE
     Indication: ABDOMINAL DISTENSION
     Route: 065
     Dates: start: 20161024
  24. GENTAMICIN SULFATE. [Concomitant]
     Active Substance: GENTAMICIN SULFATE
     Indication: INFECTION PROPHYLAXIS
     Route: 065
     Dates: start: 20170810, end: 20171023
  25. PENTAGIN [Concomitant]
     Active Substance: PENTAZOCINE HYDROCHLORIDE
     Indication: PREMEDICATION
     Route: 065
     Dates: start: 20170824, end: 20170824
  26. CANDESARTAN. [Concomitant]
     Active Substance: CANDESARTAN
     Indication: HYPERTENSION
     Route: 065
     Dates: start: 20170821

REACTIONS (2)
  - Wound haemorrhage [Recovered/Resolved]
  - Pulmonary arterial hypertension [Recovering/Resolving]

NARRATIVE: CASE EVENT DATE: 20170810
